FAERS Safety Report 23782639 (Version 1)
Quarter: 2024Q2

REPORT INFORMATION
  Report Type: Spontaneous
  Country: US (occurrence: None)
  Receive Date: 20240424
  Receipt Date: 20240424
  Transmission Date: 20240716
  Serious: Yes (Other)
  Sender: FDA-Public Use
  Company Number: None

PATIENT
  Age: 31 Year
  Sex: Female
  Weight: 71 kg

DRUGS (16)
  1. LEUPROLIDE ACETATE [Suspect]
     Active Substance: ISOPROPYL ALCOHOL\LEUPROLIDE ACETATE
     Indication: Breast cancer
     Dosage: OTHER FREQUENCY : ONCE;?
     Route: 058
  2. ALPRAZOLAM [Concomitant]
     Active Substance: ALPRAZOLAM
  3. BUPROPION [Concomitant]
     Active Substance: BUPROPION
  4. EXEMESTANE [Concomitant]
     Active Substance: EXEMESTANE
  5. GABAPENTIN [Concomitant]
     Active Substance: GABAPENTIN
  6. HYDROXYZINE [Concomitant]
     Active Substance: HYDROXYZINE HYDROCHLORIDE
  7. LINACLOTIDE [Concomitant]
     Active Substance: LINACLOTIDE
  8. LISDEXAMFETAMINE [Concomitant]
     Active Substance: LISDEXAMFETAMINE
  9. LORATADINE [Concomitant]
     Active Substance: LORATADINE
  10. METHOCARBAMOL [Concomitant]
     Active Substance: METHOCARBAMOL
  11. METOPROLOL SUCCINATE [Concomitant]
     Active Substance: METOPROLOL SUCCINATE
  12. OMEPRAZOLE [Concomitant]
     Active Substance: OMEPRAZOLE
  13. ONDANSETRON [Concomitant]
     Active Substance: ONDANSETRON
  14. PREGABALIN [Concomitant]
     Active Substance: PREGABALIN
  15. TENAPANOR [Concomitant]
     Active Substance: TENAPANOR
  16. VENLAFAXINE [Concomitant]
     Active Substance: VENLAFAXINE HYDROCHLORIDE

REACTIONS (6)
  - Immediate post-injection reaction [None]
  - Swelling [None]
  - Blister [None]
  - Contusion [None]
  - Chemical burn [None]
  - Cellulitis [None]

NARRATIVE: CASE EVENT DATE: 20240311
